FAERS Safety Report 10656721 (Version 1)
Quarter: 2014Q4

REPORT INFORMATION
  Report Type: Spontaneous
  Country: US (occurrence: US)
  Receive Date: 20141217
  Receipt Date: 20141217
  Transmission Date: 20150529
  Serious: Yes (Hospitalization, Other)
  Sender: FDA-Public Use
  Company Number: US-AUROBINDO-AUR-APL-2014-12900

PATIENT
  Age: 10 Year
  Sex: Male

DRUGS (1)
  1. AMOXICILLIN. [Suspect]
     Active Substance: AMOXICILLIN
     Indication: PHARYNGITIS STREPTOCOCCAL
     Dosage: UNK
     Route: 065

REACTIONS (18)
  - Subcutaneous emphysema [Recovered/Resolved]
  - Skin exfoliation [Recovered/Resolved]
  - Palpitations [Recovered/Resolved]
  - Pulmonary air leakage [Recovered/Resolved]
  - Pain of skin [Recovered/Resolved]
  - Oropharyngeal pain [Not Recovered/Not Resolved]
  - Macule [Recovered/Resolved]
  - Purpura [Recovered/Resolved]
  - Skin erosion [Recovered/Resolved]
  - Breath sounds abnormal [Recovered/Resolved]
  - Rales [Recovered/Resolved]
  - Lung infiltration [Recovered/Resolved]
  - Toxic epidermal necrolysis [Recovered/Resolved]
  - Eye irritation [Not Recovered/Not Resolved]
  - Pneumothorax [Recovered/Resolved]
  - Rash [Recovered/Resolved]
  - Crepitations [Recovered/Resolved]
  - Pneumomediastinum [Recovered/Resolved]
